FAERS Safety Report 16960983 (Version 1)
Quarter: 2019Q4

REPORT INFORMATION
  Report Type: Spontaneous
  Country: US (occurrence: US)
  Receive Date: 20191024
  Receipt Date: 20191024
  Transmission Date: 20200122
  Serious: No
  Sender: FDA-Public Use
  Company Number: None

PATIENT
  Age: 11 Year
  Sex: Female
  Weight: 26 kg

DRUGS (1)
  1. PENICILLIN VK 250MG/5ML [Suspect]
     Active Substance: PENICILLIN V POTASSIUM
     Dates: start: 20191018, end: 20191024

REACTIONS (5)
  - Lip haemorrhage [None]
  - Mouth ulceration [None]
  - Oropharyngeal pain [None]
  - Lip ulceration [None]
  - Dysphagia [None]

NARRATIVE: CASE EVENT DATE: 20191018
